FAERS Safety Report 17766310 (Version 1)
Quarter: 2020Q2

REPORT INFORMATION
  Report Type: Spontaneous
  Country: CN (occurrence: CN)
  Receive Date: 20200511
  Receipt Date: 20200511
  Transmission Date: 20200714
  Serious: Yes (Disabling, Other)
  Sender: FDA-Public Use
  Company Number: CN-PFIZER INC-2020186600

PATIENT
  Age: 83 Year
  Sex: Female
  Weight: 75 kg

DRUGS (3)
  1. ACETYLSALICYLIC ACID [Suspect]
     Active Substance: ASPIRIN
     Indication: PLATELET AGGREGATION INHIBITION
     Dosage: 100 MG, 1X/DAY
     Route: 048
     Dates: start: 20160408, end: 20200422
  2. CELEBREX [Suspect]
     Active Substance: CELECOXIB
     Dosage: 0.2 G, 2X/DAY
     Route: 048
     Dates: start: 20200421, end: 20200422
  3. CELEBREX [Suspect]
     Active Substance: CELECOXIB
     Indication: BONE PAIN
     Dosage: 0.2 G, 2X/DAY
     Route: 048
     Dates: start: 20200421, end: 20200422

REACTIONS (3)
  - Contraindicated product administered [Unknown]
  - Gastric ulcer [Unknown]
  - Colon cancer [Unknown]

NARRATIVE: CASE EVENT DATE: 20200421
